FAERS Safety Report 7190661-9 (Version None)
Quarter: 2010Q4

REPORT INFORMATION
  Report Type: 
  Country: None (occurrence: None)
  Receive Date: 20101221
  Receipt Date: 20101221
  Transmission Date: 20110411
  Serious: No
  Sender: FDA-Public Use
  Company Number: None

PATIENT
  Sex: Female

DRUGS (2)
  1. DIOVAN [Suspect]
  2. CLONIDINE [Suspect]

REACTIONS (6)
  - DYSMENORRHOEA [None]
  - FEELING ABNORMAL [None]
  - HAEMORRHAGE [None]
  - SWELLING [None]
  - UTERINE DISORDER [None]
  - VAGINAL DISCHARGE [None]
